FAERS Safety Report 5823187-2 (Version None)
Quarter: 2008Q3

REPORT INFORMATION
  Report Type: 
  Country: None (occurrence: None)
  Receive Date: 20080725
  Receipt Date: 20080721
  Transmission Date: 20090109
  Serious: Yes (Other)
  Sender: FDA-Public Use
  Company Number: PHHY2008AT14826

PATIENT
  Sex: Female

DRUGS (5)
  1. GLEEVEC [Suspect]
     Indication: CHRONIC MYELOID LEUKAEMIA
     Dosage: UNK
     Dates: end: 20080703
  2. TASIGNA [Concomitant]
     Indication: CHRONIC MYELOID LEUKAEMIA
     Dosage: 400 MG, BID
     Dates: start: 20080704
  3. HALCION [Concomitant]
     Indication: INSOMNIA
     Dosage: 0.25 MG EVENING
     Route: 048
  4. DIPHENHYDRAMINE HCL [Concomitant]
     Indication: DRUG INTOLERANCE
     Dosage: 4 X 1 DAILY
     Route: 048
     Dates: start: 20080711
  5. ULSAL [Concomitant]
     Indication: DRUG INTOLERANCE
     Dosage: 4 X 1 DAILY
     Route: 048
     Dates: start: 20080711

REACTIONS (4)
  - EYELID OEDEMA [None]
  - OEDEMA PERIPHERAL [None]
  - PANCYTOPENIA [None]
  - SKIN TOXICITY [None]
